FAERS Safety Report 17975315 (Version 3)
Quarter: 2020Q3

REPORT INFORMATION
  Report Type: Spontaneous
  Country: GB (occurrence: GB)
  Receive Date: 20200702
  Receipt Date: 20200724
  Transmission Date: 20201103
  Serious: Yes (Death)
  Sender: FDA-Public Use
  Company Number: GB-NOVOPROD-736342

PATIENT
  Age: 54 Year
  Sex: Female

DRUGS (2)
  1. SAXENDA [Suspect]
     Active Substance: LIRAGLUTIDE
     Dosage: UNK ( DOSE INCREASED)
     Route: 065
  2. SAXENDA [Suspect]
     Active Substance: LIRAGLUTIDE
     Indication: PRODUCT USED FOR UNKNOWN INDICATION
     Dosage: UNK
     Route: 065
     Dates: start: 202004

REACTIONS (9)
  - Insomnia [Unknown]
  - Diarrhoea [Unknown]
  - Drug diversion [Unknown]
  - Product label counterfeit [Unknown]
  - Headache [Unknown]
  - Vomiting [Unknown]
  - Cerebral haemorrhage [Fatal]
  - Fatigue [Unknown]
  - Intentional product misuse [Unknown]
